FAERS Safety Report 8330436-8 (Version None)
Quarter: 2012Q2

REPORT INFORMATION
  Report Type: 
  Country: None (occurrence: None)
  Receive Date: 20120502
  Receipt Date: 20120426
  Transmission Date: 20120825
  Serious: Yes (Hospitalization)
  Sender: FDA-Public Use
  Company Number: US-B.I. PHARMACEUTICALS,INC./RIDGEFIELD-2012-BP-09756BP

PATIENT
  Sex: Male
  Weight: 91.7 kg

DRUGS (12)
  1. PRADAXA [Suspect]
     Indication: CEREBROVASCULAR ACCIDENT PROPHYLAXIS
     Dosage: 300 MG
     Route: 048
  2. COREG [Concomitant]
     Dosage: 6.25 MG
     Route: 048
  3. COZAAR [Concomitant]
  4. HYDROCHLOROTHIAZIDE [Concomitant]
  5. PRADAXA [Suspect]
     Indication: ATRIAL FIBRILLATION
  6. DILTIAZEM [Concomitant]
     Dosage: 180 MG
     Route: 048
  7. LASIX [Concomitant]
     Dosage: 40 MG
     Route: 048
  8. METFORMIN HCL [Concomitant]
     Dosage: 2 G
     Route: 048
  9. PERCOCET [Concomitant]
  10. ASPIRIN [Concomitant]
     Dosage: 162 MG
     Route: 048
  11. LIPITOR [Concomitant]
     Dosage: 80 MG
     Route: 048
  12. AMARYL [Concomitant]
     Dosage: 4 MG
     Route: 048

REACTIONS (1)
  - ATRIOVENTRICULAR BLOCK [None]
